FAERS Safety Report 9321035 (Version 1)
Quarter: 2013Q2

REPORT INFORMATION
  Report Type: Spontaneous
  Country: US (occurrence: None)
  Receive Date: 20130529
  Receipt Date: 20130529
  Transmission Date: 20140414
  Serious: Yes (Hospitalization)
  Sender: FDA-Public Use
  Company Number: None

PATIENT
  Age: 69 Year
  Sex: Female
  Weight: 61 kg

DRUGS (2)
  1. IFOSFAMIDE [Suspect]
     Dosage: PT. RECEIVED 2.66MG ON DAY AND 2.66MG ON DAY 2.
  2. PACLITAXEL (TAXOL) [Suspect]
     Route: 042

REACTIONS (4)
  - Asthenia [None]
  - Confusional state [None]
  - Urinary incontinence [None]
  - Acute myocardial infarction [None]
